FAERS Safety Report 15379406 (Version 1)
Quarter: 2018Q3

REPORT INFORMATION
  Report Type: Spontaneous
  Country: US (occurrence: US)
  Receive Date: 20180906
  Receipt Date: 20180906
  Transmission Date: 20181010
  Serious: Yes (Death, Hospitalization)
  Sender: FDA-Public Use
  Company Number: None

PATIENT
  Age: 82 Year
  Sex: Male
  Weight: 72.57 kg

DRUGS (14)
  1. METFORMIN [Concomitant]
     Active Substance: METFORMIN HYDROCHLORIDE
  2. TRAZODONE [Concomitant]
     Active Substance: TRAZODONE HYDROCHLORIDE
  3. FENTANYL TRANSDERMAL SYSTEM [Suspect]
     Active Substance: FENTANYL
     Indication: PAIN
     Dosage: ?          QUANTITY:1 DF DOSAGE FORM;OTHER FREQUENCY:EVERY 72 HRS;?
     Route: 062
     Dates: start: 20180625, end: 20180626
  4. LYRICA [Concomitant]
     Active Substance: PREGABALIN
  5. HYDROCODON APAP [Concomitant]
     Active Substance: ACETAMINOPHEN\HYDROCODONE
  6. OXYGEN. [Concomitant]
     Active Substance: OXYGEN
  7. LOVASTATIN. [Concomitant]
     Active Substance: LOVASTATIN
  8. METROPROLOL [Concomitant]
     Active Substance: METOPROLOL
  9. DEXAMETHASONE. [Concomitant]
     Active Substance: DEXAMETHASONE
  10. NEBULIZER [Concomitant]
     Active Substance: DEVICE
  11. LEVOXYL [Concomitant]
     Active Substance: LEVOTHYROXINE SODIUM
  12. LOSARTAN. [Concomitant]
     Active Substance: LOSARTAN
  13. DICLOFENAC SODIUM. [Concomitant]
     Active Substance: DICLOFENAC SODIUM
  14. ROPINIROLE. [Concomitant]
     Active Substance: ROPINIROLE

REACTIONS (1)
  - Pneumonia [None]

NARRATIVE: CASE EVENT DATE: 20180626
